FAERS Safety Report 4781722-X (Version None)
Quarter: 2005Q3

REPORT INFORMATION
  Report Type: 
  Country: None (occurrence: None)
  Receive Date: 20050927
  Receipt Date: 20050914
  Transmission Date: 20060218
  Serious: Yes (Other)
  Sender: FDA-Public Use
  Company Number: 2005127450

PATIENT
  Sex: Male

DRUGS (1)
  1. DRAMAMINE [Suspect]
     Indication: ACCIDENTAL OVERDOSE
     Dosage: 12 TABS IN ONE DAY, ORAL
     Route: 048
     Dates: start: 20050913, end: 20050913

REACTIONS (3)
  - ACCIDENTAL OVERDOSE [None]
  - FEELING ABNORMAL [None]
  - MEMORY IMPAIRMENT [None]
